FAERS Safety Report 12357814 (Version 1)
Quarter: 2016Q2

REPORT INFORMATION
  Report Type: Spontaneous
  Country: US (occurrence: US)
  Receive Date: 20160512
  Receipt Date: 20160512
  Transmission Date: 20160815
  Serious: Yes (Hospitalization, Other)
  Sender: FDA-Public Use
  Company Number: US-APOTEX-2016AP008370

PATIENT
  Age: 80 Year
  Sex: Male

DRUGS (1)
  1. ATORVASTATIN CALCIUM. [Suspect]
     Active Substance: ATORVASTATIN CALCIUM
     Indication: DYSLIPIDAEMIA
     Dosage: 80 MG, DAILY
     Route: 065

REACTIONS (3)
  - Autoimmune disorder [Recovering/Resolving]
  - Myopathy [Recovering/Resolving]
  - Asthenia [Recovering/Resolving]
